FAERS Safety Report 8555981-1 (Version None)
Quarter: 2012Q3

REPORT INFORMATION
  Report Type: 
  Country: None (occurrence: None)
  Receive Date: 20120801
  Receipt Date: 20100831
  Transmission Date: 20120928
  Serious: Yes (Hospitalization, Other)
  Sender: FDA-Public Use
  Company Number: US-BAYER-201028705NA

PATIENT
  Age: 34 Year
  Sex: Female
  Weight: 142.86 kg

DRUGS (13)
  1. ALLEGRA-D 12 HOUR [Concomitant]
     Indication: HYPERSENSITIVITY
     Dates: start: 20000101
  2. YASMIN [Suspect]
     Indication: CONTRACEPTION
  3. ZOLPIDEM [Concomitant]
     Indication: SLEEP DISORDER THERAPY
     Dates: start: 20080101, end: 20100101
  4. TRAZODONE HYDROCHLORIDE [Concomitant]
     Indication: DEPRESSION
     Dates: start: 20090101, end: 20100101
  5. TRAMADOL HYDROCHLORIDE [Concomitant]
     Indication: CARPAL TUNNEL SYNDROME
     Dates: start: 20090101
  6. HYDROCODONE [Concomitant]
     Indication: CARPAL TUNNEL SYNDROME
     Dates: start: 20070401, end: 20100101
  7. KLONOPIN [Concomitant]
  8. ALLEGRA-D 12 HOUR [Concomitant]
     Indication: SEASONAL ALLERGY
  9. ALLEGRA-D [FEXOFENADINE HYDROCHLORIDE,PSEUDOEPHEDRINE HYDROCHLORID [Concomitant]
     Dates: start: 20000101
  10. VASERETIC [Concomitant]
  11. YASMIN [Suspect]
     Indication: MENSTRUATION IRREGULAR
     Dosage: 1 DF (DAILY DOSE), QD, ORAL
     Route: 048
     Dates: start: 20030901, end: 20070701
  12. CYMBALTA [Concomitant]
     Indication: DEPRESSION
     Dates: start: 20060101
  13. LISINOPRIL [Concomitant]
     Indication: HYPERTENSION

REACTIONS (7)
  - VOMITING [None]
  - GALLBLADDER CHOLESTEROLOSIS [None]
  - CHOLECYSTITIS [None]
  - CHOLELITHIASIS [None]
  - CHOLESTEROSIS [None]
  - NAUSEA [None]
  - ABDOMINAL PAIN UPPER [None]
